FAERS Safety Report 16950418 (Version 1)
Quarter: 2019Q4

REPORT INFORMATION
  Report Type: Spontaneous
  Country: FR (occurrence: FR)
  Receive Date: 20191023
  Receipt Date: 20191023
  Transmission Date: 20200122
  Serious: Yes (Hospitalization)
  Sender: FDA-Public Use
  Company Number: FR-ZYDUS-030000

PATIENT
  Age: 77 Year
  Sex: Female

DRUGS (3)
  1. CEFAZOLIN [Suspect]
     Active Substance: CEFAZOLIN
     Indication: ANTIBIOTIC PROPHYLAXIS
     Dosage: UNSPECIFIED
     Route: 042
     Dates: start: 20180811, end: 20180814
  2. RAMIPRIL. [Suspect]
     Active Substance: RAMIPRIL
     Indication: HYPERTENSION
     Route: 048
     Dates: start: 20180809, end: 20180814
  3. TOPALGIC (TRAMADOL) [Suspect]
     Active Substance: TRAMADOL HYDROCHLORIDE
     Indication: PAIN
     Dosage: UNSPECIFIED
     Route: 048
     Dates: start: 20180809, end: 20180814

REACTIONS (1)
  - Acute generalised exanthematous pustulosis [Not Recovered/Not Resolved]

NARRATIVE: CASE EVENT DATE: 20180813
